FAERS Safety Report 7368683-4 (Version None)
Quarter: 2011Q1

REPORT INFORMATION
  Report Type: 
  Country: None (occurrence: None)
  Receive Date: 20110304
  Receipt Date: 20110225
  Transmission Date: 20110831
  Serious: Yes (Hospitalization)
  Sender: FDA-Public Use
  Company Number: B0702572A

PATIENT

DRUGS (1)
  1. ORLISTAT [Suspect]
     Indication: WEIGHT DECREASED

REACTIONS (2)
  - IMPAIRED HEALING [None]
  - LEUKOCYTOCLASTIC VASCULITIS [None]
